FAERS Safety Report 7623717-4 (Version None)
Quarter: 2011Q3

REPORT INFORMATION
  Report Type: 
  Country: None (occurrence: None)
  Receive Date: 20110720
  Receipt Date: 20110715
  Transmission Date: 20111222
  Serious: Yes (Death, Disabling)
  Sender: FDA-Public Use
  Company Number: US-GLAXOSMITHKLINE-A0927023A

PATIENT
  Age: 80 Year
  Sex: Male

DRUGS (10)
  1. SINEMET [Concomitant]
  2. ASPIRIN [Concomitant]
  3. ACTOS [Concomitant]
  4. DIOVAN [Concomitant]
  5. REQUIP XL [Suspect]
     Indication: PARKINSON'S DISEASE
     Dosage: 8MG PER DAY
     Route: 048
     Dates: start: 20081201, end: 20110425
  6. ATENOLOL [Concomitant]
  7. QUINAPRIL HCL [Concomitant]
  8. GLYBURIDE [Concomitant]
  9. CRESTOR [Concomitant]
  10. NEURONTIN [Concomitant]

REACTIONS (2)
  - PARKINSON'S DISEASE [None]
  - MALAISE [None]
